FAERS Safety Report 22244305 (Version 1)
Quarter: 2023Q2

REPORT INFORMATION
  Report Type: Spontaneous
  Country: US (occurrence: None)
  Receive Date: 20230422
  Receipt Date: 20230422
  Transmission Date: 20230722
  Serious: Yes (Disabling, Other)
  Sender: FDA-Public Use
  Company Number: None

PATIENT
  Age: 53 Year
  Sex: Male
  Weight: 90 kg

DRUGS (9)
  1. INVEGA SUSTENNA [Suspect]
     Active Substance: PALIPERIDONE PALMITATE
     Indication: Schizoaffective disorder bipolar type
     Dosage: OTHER QUANTITY : 1 INJECTION(S);?OTHER FREQUENCY : MONTHS;?
     Route: 030
  2. INVEGA TRINZA [Suspect]
     Active Substance: PALIPERIDONE PALMITATE
  3. RISPERIDONE [Suspect]
     Active Substance: RISPERIDONE
  4. PALIPERIDONE [Suspect]
     Active Substance: PALIPERIDONE
  5. BUPROPION [Concomitant]
     Active Substance: BUPROPION
  6. FLUVOXAMINE [Concomitant]
     Active Substance: FLUVOXAMINE
  7. ATORVASTATIN [Concomitant]
     Active Substance: ATORVASTATIN
  8. VITAMIN D [Concomitant]
     Active Substance: VITAMIN D NOS
  9. NEUREVIA BRAIN AND EYE [Concomitant]

REACTIONS (3)
  - Blood prolactin increased [None]
  - Alopecia [None]
  - Male sexual dysfunction [None]
